FAERS Safety Report 25976305 (Version 1)
Quarter: 2025Q4

REPORT INFORMATION
  Report Type: Spontaneous
  Country: EU (occurrence: EU)
  Receive Date: 20251029
  Receipt Date: 20251029
  Transmission Date: 20260117
  Serious: Yes (Other)
  Sender: NOVARTIS
  Company Number: EU-002147023-NVSC2025HR162118

PATIENT
  Sex: Female

DRUGS (3)
  1. TASIGNA [Suspect]
     Active Substance: NILOTINIB
     Indication: Chronic myeloid leukaemia
     Dosage: 400 MG BID (2 X 400MG)
     Route: 065
     Dates: start: 201202, end: 202406
  2. TASIGNA [Suspect]
     Active Substance: NILOTINIB
     Dosage: 200 MG BID (2 X 200MG)
     Route: 065
     Dates: start: 202406, end: 202410
  3. TASIGNA [Suspect]
     Active Substance: NILOTINIB
     Dosage: 400 MG BID (2 X 400MG)
     Route: 048
     Dates: start: 202410, end: 202503

REACTIONS (5)
  - Chronic myeloid leukaemia recurrent [Unknown]
  - Coronary artery stenosis [Unknown]
  - Hypertension [Unknown]
  - Hyperlipidaemia [Unknown]
  - Intermittent claudication [Unknown]

NARRATIVE: CASE EVENT DATE: 20220101
